FAERS Safety Report 5562357-8 (Version None)
Quarter: 2007Q4

REPORT INFORMATION
  Report Type: 
  Country: None (occurrence: None)
  Receive Date: 20071215
  Receipt Date: 20070720
  Transmission Date: 20080405
  Serious: No
  Sender: FDA-Public Use
  Company Number: US-AMGEN-US235259

PATIENT
  Sex: Female

DRUGS (11)
  1. ARANESP [Suspect]
     Indication: MYELODYSPLASTIC SYNDROME
     Dates: start: 20061110
  2. HYDROCHLOROTHIAZIDE [Concomitant]
     Route: 065
  3. SYNTHROID [Concomitant]
     Route: 065
  4. KLOR-CON [Concomitant]
     Route: 065
  5. FLEXERIL [Concomitant]
     Route: 065
  6. IBUPROFEN [Concomitant]
     Route: 065
  7. VITAMIN CAP [Concomitant]
     Route: 065
  8. CALCIUM [Concomitant]
     Route: 065
  9. FOSAMAX [Concomitant]
     Route: 065
  10. PREDNISONE [Concomitant]
     Route: 065
  11. ADVAIR DISKUS 100/50 [Concomitant]
     Route: 065

REACTIONS (1)
  - DRUG INEFFECTIVE [None]
